FAERS Safety Report 6211318-4 (Version None)
Quarter: 2009Q2

REPORT INFORMATION
  Report Type: 
  Country: None (occurrence: None)
  Receive Date: 20090528
  Receipt Date: 20090512
  Transmission Date: 20091009
  Serious: Yes (Hospitalization)
  Sender: FDA-Public Use
  Company Number: A03200902220

PATIENT
  Age: 54 Year
  Sex: Male

DRUGS (5)
  1. OFORTA - (FLUDARABINE PHOSPHATE) [Suspect]
     Indication: CHRONIC LYMPHOCYTIC LEUKAEMIA
     Dates: start: 20041101, end: 20050601
  2. OFORTA - (FLUDARABINE PHOSPHATE) [Suspect]
     Indication: CHRONIC LYMPHOCYTIC LEUKAEMIA
     Dates: start: 20071101, end: 20080501
  3. CYCLOPHOSPHAMIDE [Suspect]
     Indication: CHRONIC LYMPHOCYTIC LEUKAEMIA
     Dates: start: 20041101, end: 20050601
  4. (RITUXIMAB) [Suspect]
     Indication: CHRONIC LYMPHOCYTIC LEUKAEMIA
     Dates: start: 20041101, end: 20050601
  5. VIDAZA [Concomitant]

REACTIONS (3)
  - ASTHENIA [None]
  - HYPOPHAGIA [None]
  - MYELODYSPLASTIC SYNDROME [None]
